FAERS Safety Report 23618289 (Version 10)
Quarter: 2025Q4

REPORT INFORMATION
  Report Type: Report from Study
  Country: JP (occurrence: JP)
  Receive Date: 20240311
  Receipt Date: 20251012
  Transmission Date: 20260117
  Serious: Yes (Hospitalization, Other)
  Sender: ABBVIE
  Company Number: JP-TAKEDA-2024TJP003469

PATIENT
  Age: 69 Year
  Sex: Male
  Weight: 53 kg

DRUGS (9)
  1. LEUPROLIDE ACETATE [Suspect]
     Active Substance: LEUPROLIDE ACETATE
     Indication: Bulbospinal muscular atrophy congenital
     Dosage: FORM STRENGTH:11.25 MILLIGRAM, Q3MONTHS
     Route: 058
     Dates: start: 20180206
  2. OLMESARTAN MEDOXOMIL [Concomitant]
     Active Substance: OLMESARTAN MEDOXOMIL
     Indication: Product used for unknown indication
     Dosage: FORM STRENGTH: 10 MILLIGRAM, QD
     Route: 048
     Dates: start: 20170523
  3. REBAMIPIDE [Concomitant]
     Active Substance: REBAMIPIDE
     Indication: Product used for unknown indication
     Dosage: FORM STRENGTH:100 MILLIGRAM
     Route: 065
     Dates: start: 20191210, end: 20200526
  4. LOXOPROFEN SODIUM [Concomitant]
     Active Substance: LOXOPROFEN SODIUM
     Indication: Back pain
     Dosage: FORM STRENGTH: 60 MILLIGRAM
     Route: 065
     Dates: start: 20191210, end: 20200526
  5. LOXOPROFEN SODIUM [Concomitant]
     Active Substance: LOXOPROFEN SODIUM
     Indication: Back pain
     Dosage: FORM STRENGTH:100 MILLIGRAM
     Route: 065
  6. PRAVASTATIN SODIUM [Concomitant]
     Active Substance: PRAVASTATIN SODIUM
     Indication: Product used for unknown indication
     Dosage: FORM STRENGTH:10 MILLIGRAM
     Route: 065
     Dates: start: 20190108
  7. LOXOPROFEN SODIUM [Concomitant]
     Active Substance: LOXOPROFEN SODIUM
     Indication: Back pain
     Dosage: FORM STRENGTH: 100 MILLIGRAM, QD
     Route: 065
     Dates: start: 20210720
  8. ROSUVASTATIN [Concomitant]
     Active Substance: ROSUVASTATIN
     Indication: Dyslipidaemia
     Dosage: FORM STRENGTH: 2.5 MILLIGRAM
     Route: 048
     Dates: start: 20181016, end: 20181016
  9. ROSUVASTATIN [Concomitant]
     Active Substance: ROSUVASTATIN
     Indication: Dyslipidaemia
     Dosage: FORM STRENGTH: 10 MILLIGRAM, QD
     Route: 048
     Dates: start: 20190108

REACTIONS (4)
  - Urinary bladder haemorrhage [Recovering/Resolving]
  - Femur fracture [Recovered/Resolved]
  - Fall [Recovered/Resolved]
  - Hypertension [Recovered/Resolved]

NARRATIVE: CASE EVENT DATE: 20240101
